FAERS Safety Report 8971713 (Version 2)
Quarter: 2013Q3

REPORT INFORMATION
  Report Type: Report from Study
  Country: US (occurrence: US)
  Receive Date: 20121217
  Receipt Date: 20130927
  Transmission Date: 20140515
  Serious: Yes (Other)
  Sender: FDA-Public Use
  Company Number: US-ALEXION PHARMACEUTICALS INC.-A201202382

PATIENT
  Age: 8 Month
  Sex: Female

DRUGS (1)
  1. SOLIRIS [Suspect]
     Indication: HAEMOLYTIC URAEMIC SYNDROME
     Dosage: 300 MG, Q 3 WEEKS
     Route: 042

REACTIONS (8)
  - Platelet count decreased [Unknown]
  - Anaemia [Unknown]
  - Chromaturia [Unknown]
  - Somnolence [Unknown]
  - Malaise [Unknown]
  - Mood altered [Recovering/Resolving]
  - Fatigue [Unknown]
  - Diarrhoea [Unknown]
